FAERS Safety Report 10056089 (Version 1)
Quarter: 2014Q2

REPORT INFORMATION
  Report Type: Spontaneous
  Country: VN (occurrence: VN)
  Receive Date: 20140403
  Receipt Date: 20140403
  Transmission Date: 20141212
  Serious: Yes (Other)
  Sender: FDA-Public Use
  Company Number: VN-MPIJNJ-2014JNJ001060

PATIENT
  Sex: 0

DRUGS (2)
  1. VELCADE [Suspect]
     Indication: PLASMA CELL MYELOMA
     Dosage: 1.3 MG/M2, UNK
     Route: 042
     Dates: start: 201401
  2. DEXAMETHASONE [Concomitant]
     Dosage: UNK
     Dates: start: 201401

REACTIONS (1)
  - Cardiomegaly [Not Recovered/Not Resolved]
